FAERS Safety Report 7760372-7 (Version None)
Quarter: 2011Q3

REPORT INFORMATION
  Report Type: 
  Country: None (occurrence: None)
  Receive Date: 20110919
  Receipt Date: 20110907
  Transmission Date: 20111222
  Serious: Yes (Other)
  Sender: FDA-Public Use
  Company Number: PHHY2011US38157

PATIENT
  Sex: Male

DRUGS (1)
  1. GLEEVEC [Suspect]
     Indication: GASTROINTESTINAL STROMAL TUMOUR
     Dosage: 400 MG, 1 TABLET BY MOUTH TWICE A DAY
     Route: 048

REACTIONS (3)
  - RENAL CANCER [None]
  - NEOPLASM MALIGNANT [None]
  - UPPER RESPIRATORY TRACT INFECTION [None]
